FAERS Safety Report 5788934-7 (Version None)
Quarter: 2008Q2

REPORT INFORMATION
  Report Type: 
  Country: None (occurrence: None)
  Receive Date: 20080620
  Receipt Date: 20080620
  Transmission Date: 20081010
  Serious: Yes (Death)
  Sender: FDA-Public Use
  Company Number: None

PATIENT
  Age: 83 Year
  Sex: Male
  Weight: 63.5036 kg

DRUGS (1)
  1. DIGOXIN [Suspect]
     Indication: ARRHYTHMIA
     Dosage: .25MG Q24 PO
     Route: 048

REACTIONS (3)
  - CARDIAC FAILURE [None]
  - MALAISE [None]
  - RESPIRATORY FAILURE [None]
